FAERS Safety Report 7355132-5 (Version None)
Quarter: 2011Q1

REPORT INFORMATION
  Report Type: 
  Country: None (occurrence: None)
  Receive Date: 20110314
  Receipt Date: 20110314
  Transmission Date: 20110831
  Serious: Yes (Hospitalization, Disabling, Other)
  Sender: FDA-Public Use
  Company Number: None

PATIENT
  Sex: Male

DRUGS (2)
  1. ALCOHOL SWAB [Suspect]
  2. TRIAD ALCOHOL SWABS [Suspect]
     Dosage: MULTIPLE

REACTIONS (7)
  - MENINGITIS [None]
  - HYDROCEPHALUS [None]
  - ENCEPHALITIS [None]
  - BACILLUS INFECTION [None]
  - APNOEA [None]
  - BLOOD GLUCOSE ABNORMAL [None]
  - BRADYCARDIA [None]
